FAERS Safety Report 7266507-7 (Version None)
Quarter: 2011Q1

REPORT INFORMATION
  Report Type: 
  Country: None (occurrence: None)
  Receive Date: 20110131
  Receipt Date: 20110125
  Transmission Date: 20110831
  Serious: Yes (Hospitalization, Other)
  Sender: FDA-Public Use
  Company Number: US-PFIZER INC-2010146873

PATIENT
  Sex: Female

DRUGS (2)
  1. CHANTIX [Suspect]
     Indication: SMOKING CESSATION THERAPY
     Dosage: 0.5 MG; 1MGUNK
     Dates: start: 20081110, end: 20081209
  2. XANAX [Concomitant]
     Indication: ANXIETY
     Dosage: UNK

REACTIONS (11)
  - DEPRESSION [None]
  - PARANOIA [None]
  - SUICIDE ATTEMPT [None]
  - AGGRESSION [None]
  - POST-TRAUMATIC STRESS DISORDER [None]
  - ANGER [None]
  - INTENTIONAL OVERDOSE [None]
  - BIPOLAR DISORDER [None]
  - NIGHTMARE [None]
  - ANXIETY [None]
  - SOCIAL AVOIDANT BEHAVIOUR [None]
